FAERS Safety Report 9174195 (Version 1)
Quarter: 2013Q1

REPORT INFORMATION
  Report Type: Spontaneous
  Country: US (occurrence: None)
  Receive Date: 20130315
  Receipt Date: 20130315
  Transmission Date: 20140127
  Serious: Yes (Hospitalization)
  Sender: FDA-Public Use
  Company Number: ACET20130005

PATIENT
  Age: 67 Year
  Sex: Female

DRUGS (1)
  1. EXTRA STRENGTH QPAP [Suspect]
     Indication: PRODUCT USED FOR UNKNOWN INDICATION
     Route: 048

REACTIONS (9)
  - Metabolic acidosis [None]
  - Wound dehiscence [None]
  - Septic shock [None]
  - Infection [None]
  - Confusional state [None]
  - Blood sodium increased [None]
  - Blood chloride increased [None]
  - Blood urea increased [None]
  - International normalised ratio increased [None]
